FAERS Safety Report 16528011 (Version 1)
Quarter: 2019Q3

REPORT INFORMATION
  Report Type: Spontaneous
  Country: GB (occurrence: GB)
  Receive Date: 20190704
  Receipt Date: 20190704
  Transmission Date: 20191004
  Serious: Yes (Other)
  Sender: FDA-Public Use
  Company Number: GB-ACTELION-A-CH2019-192406

PATIENT
  Age: 41 Day
  Sex: Male
  Weight: 4 kg

DRUGS (4)
  1. EPOPROSTENOL SODIUM. [Suspect]
     Active Substance: EPOPROSTENOL SODIUM
     Dosage: 50 MCG BLUS AND 150 MCG WITH PERFADEX
     Route: 050
  2. EPOPROSTENOL SODIUM. [Suspect]
     Active Substance: EPOPROSTENOL SODIUM
     Indication: ORGAN DONOR
     Route: 042
  3. HEPARIN [Concomitant]
     Active Substance: HEPARIN SODIUM
  4. PERFADEX [Concomitant]

REACTIONS (2)
  - Donor organ tissue preparation issue [Unknown]
  - Haemodynamic instability [Unknown]
